FAERS Safety Report 19372507 (Version 1)
Quarter: 2021Q2

REPORT INFORMATION
  Report Type: Spontaneous
  Country: JP (occurrence: JP)
  Receive Date: 20210604
  Receipt Date: 20210604
  Transmission Date: 20210717
  Serious: Yes (Other)
  Sender: FDA-Public Use
  Company Number: JP-SUN PHARMACEUTICAL INDUSTRIES LTD-2021R1-298913

PATIENT
  Age: 65 Year
  Sex: Male

DRUGS (2)
  1. DOCETAXEL. [Suspect]
     Active Substance: DOCETAXEL
     Indication: SARCOMATOID CARCINOMA
     Dosage: 60 MG/METER SQUARE (TWO CYCLES)
     Route: 065
  2. RAMUCIRUMAB [Suspect]
     Active Substance: RAMUCIRUMAB
     Indication: SARCOMATOID CARCINOMA
     Dosage: UNK (10 MG/KG) (TWO CYCLES)
     Route: 065

REACTIONS (1)
  - Neoplasm progression [Unknown]
